FAERS Safety Report 4339960-6 (Version None)
Quarter: 2004Q2

REPORT INFORMATION
  Report Type: 
  Country: None (occurrence: None)
  Receive Date: 20040414
  Receipt Date: 20040401
  Transmission Date: 20050107
  Serious: Yes (Hospitalization, Other)
  Sender: FDA-Public Use
  Company Number: 2004013249

PATIENT
  Age: 92 Year
  Sex: Female

DRUGS (3)
  1. ZOLOFT [Suspect]
     Indication: DEPRESSION
     Dosage: ORAL
     Route: 048
  2. CARDIAC THERAPY (CARDIAC THERAPY) [Concomitant]
  3. ESOMEPRAZOLE (ESOMEPRAZOLE) [Concomitant]

REACTIONS (5)
  - ANOREXIA [None]
  - FALL [None]
  - OPEN FRACTURE [None]
  - UNEQUAL LEG LENGTH ACQUIRED [None]
  - WEIGHT DECREASED [None]
